FAERS Safety Report 8396757-8 (Version None)
Quarter: 2012Q1

REPORT INFORMATION
  Report Type: 
  Country: None (occurrence: None)
  Receive Date: 20120323
  Receipt Date: 20110415
  Transmission Date: 20120608
  Serious: Yes (Hospitalization)
  Sender: FDA-Public Use
  Company Number: 163-21880-11042227

PATIENT
  Age: 59 Year
  Sex: Male

DRUGS (4)
  1. GABAPENTIN [Concomitant]
  2. DEXAMETHASONE [Concomitant]
  3. COREG [Concomitant]
  4. REVLIMID [Suspect]
     Indication: MULTIPLE MYELOMA
     Dosage: 25 MG, DAILY FOR 21 DAYS, PO
     Route: 048
     Dates: start: 20100726

REACTIONS (1)
  - CLOSTRIDIAL INFECTION [None]
